FAERS Safety Report 16697971 (Version 1)
Quarter: 2019Q3

REPORT INFORMATION
  Report Type: Spontaneous
  Country: US (occurrence: US)
  Receive Date: 20190813
  Receipt Date: 20190813
  Transmission Date: 20191004
  Serious: Yes (Other)
  Sender: FDA-Public Use
  Company Number: US-LUNDBECK-DKLU3002466

PATIENT

DRUGS (1)
  1. VIGABATRIN (TABLET) [Suspect]
     Active Substance: VIGABATRIN
     Indication: SEIZURE
     Route: 065

REACTIONS (2)
  - Fundoscopy abnormal [Unknown]
  - Toxicity to various agents [Unknown]
